FAERS Safety Report 4361248-8 (Version None)
Quarter: 2004Q2

REPORT INFORMATION
  Report Type: 
  Country: None (occurrence: None)
  Receive Date: 20040520
  Receipt Date: 20030709
  Transmission Date: 20050107
  Serious: Yes (Death, Other)
  Sender: FDA-Public Use
  Company Number: PHBS2003JP07310

PATIENT
  Age: 57 Year
  Sex: Male

DRUGS (3)
  1. LASIX [Concomitant]
     Indication: URINE OUTPUT DECREASED
     Dosage: 40 MG/D VIA DR
     Route: 065
     Dates: start: 20030707, end: 20030707
  2. SOLU-MEDROL [Concomitant]
     Indication: STRIDOR
     Dosage: 250 MG/D VIA DR
     Route: 065
     Dates: start: 20030707, end: 20030707
  3. AREDIA [Suspect]
     Indication: METASTASES TO BONE
     Dosage: 45 MG, QMO
     Dates: start: 20030627, end: 20030704

REACTIONS (16)
  - BACK PAIN [None]
  - BRONCHITIS [None]
  - CONDITION AGGRAVATED [None]
  - COUGH [None]
  - DYSPNOEA [None]
  - GENERAL PHYSICAL HEALTH DETERIORATION [None]
  - INFUSION RELATED REACTION [None]
  - LYMPHOMA [None]
  - NOCTURNAL DYSPNOEA [None]
  - OXYGEN SATURATION DECREASED [None]
  - PCO2 DECREASED [None]
  - PLEURAL EFFUSION [None]
  - PNEUMONIA [None]
  - PO2 DECREASED [None]
  - PYREXIA [None]
  - RESPIRATORY FAILURE [None]
